FAERS Safety Report 5626394-7 (Version None)
Quarter: 2008Q1

REPORT INFORMATION
  Report Type: 
  Country: None (occurrence: None)
  Receive Date: 20080214
  Receipt Date: 20080201
  Transmission Date: 20080703
  Serious: Yes (Other)
  Sender: FDA-Public Use
  Company Number: GB-ROCHE-544902

PATIENT
  Age: 30 Year
  Sex: Male

DRUGS (3)
  1. FUZEON [Suspect]
     Indication: HIV INFECTION
     Dosage: DOSE NOT CHANGED
     Route: 058
  2. RITONAVIR [Suspect]
     Indication: HIV INFECTION
     Dosage: DOSE NOT CHANGED
     Route: 065
  3. TIPRANAVIR [Suspect]
     Indication: HIV INFECTION
     Dosage: DOSE NOT CHANGED
     Route: 065

REACTIONS (7)
  - CONTUSION [None]
  - EPISTAXIS [None]
  - GINGIVAL BLEEDING [None]
  - HAEMARTHROSIS [None]
  - HAEMORRHAGIC DIATHESIS [None]
  - SUBCUTANEOUS HAEMATOMA [None]
  - THROMBOCYTOPENIA [None]
